FAERS Safety Report 13543202 (Version 1)
Quarter: 2017Q2

REPORT INFORMATION
  Report Type: Not Available
  Country: US (occurrence: US)
  Receive Date: 20170514
  Receipt Date: 20170514
  Transmission Date: 20170830
  Serious: No
  Sender: FDA-Public Use
  Company Number: US-HISAMITSU-2017-US-002825

PATIENT
  Sex: Male

DRUGS (2)
  1. SALONPAS PAIN RELIEVING GEL-PATCH HOT [Suspect]
     Active Substance: CAPSICUM OLEORESIN\MENTHOL
     Route: 061
  2. SALONPAS PAIN RELIEF [Suspect]
     Active Substance: MENTHOL\METHYL SALICYLATE
     Route: 061

REACTIONS (1)
  - Drug ineffective [Unknown]
